FAERS Safety Report 10947142 (Version 2)
Quarter: 2015Q2

REPORT INFORMATION
  Report Type: Spontaneous
  Country: US (occurrence: US)
  Receive Date: 20150321
  Receipt Date: 20150525
  Transmission Date: 20150821
  Serious: No
  Sender: FDA-Public Use
  Company Number: US-JNJFOC-20141115354

PATIENT
  Sex: Female
  Weight: 62.6 kg

DRUGS (2)
  1. TOPIRAMATE. [Suspect]
     Active Substance: TOPIRAMATE
     Indication: FIBROMYALGIA
     Route: 048
     Dates: end: 2013
  2. TOPIRAMATE. [Suspect]
     Active Substance: TOPIRAMATE
     Indication: NEUROPATHY PERIPHERAL
     Route: 048
     Dates: end: 2013

REACTIONS (4)
  - Product use issue [Unknown]
  - Drug effect decreased [Not Recovered/Not Resolved]
  - Arthralgia [Not Recovered/Not Resolved]
  - Discomfort [Not Recovered/Not Resolved]

NARRATIVE: CASE EVENT DATE: 2014
